FAERS Safety Report 8188605-6 (Version None)
Quarter: 2012Q1

REPORT INFORMATION
  Report Type: 
  Country: None (occurrence: None)
  Receive Date: 20120306
  Receipt Date: 20120221
  Transmission Date: 20120608
  Serious: Yes (Other)
  Sender: FDA-Public Use
  Company Number: DE-FRI-1000028812

PATIENT
  Sex: Female

DRUGS (4)
  1. YAZ [Concomitant]
     Dosage: ETHINYL ESTRADIOL 0,02 MG / DROSPIRENON 3 MG
     Route: 048
  2. PANTOPRAZOLE [Concomitant]
     Dosage: 40 MG
     Route: 048
  3. CITALOPRAM [Suspect]
     Dosage: 10 MG
     Route: 048
     Dates: start: 20110415, end: 20110420
  4. CITALOPRAM [Suspect]
     Dosage: 20 MG
     Route: 048
     Dates: start: 20110421, end: 20110427

REACTIONS (3)
  - URINARY TRACT INFECTION [None]
  - SEROTONIN SYNDROME [None]
  - NAUSEA [None]
